FAERS Safety Report 7468919-5 (Version None)
Quarter: 2011Q2

REPORT INFORMATION
  Report Type: 
  Country: None (occurrence: None)
  Receive Date: 20110510
  Receipt Date: 20110428
  Transmission Date: 20111010
  Serious: No
  Sender: FDA-Public Use
  Company Number: US-BIOGENIDEC-2011BI016070

PATIENT
  Age: 41 Year
  Sex: Female

DRUGS (1)
  1. AVONEX [Suspect]
     Indication: MULTIPLE SCLEROSIS
     Route: 030
     Dates: start: 20050611

REACTIONS (5)
  - IRRITABILITY [None]
  - INFLUENZA LIKE ILLNESS [None]
  - NO ADVERSE EVENT [None]
  - INJECTION SITE PAIN [None]
  - FATIGUE [None]
